FAERS Safety Report 11688331 (Version 1)
Quarter: 2015Q4

REPORT INFORMATION
  Report Type: Spontaneous
  Country: CA (occurrence: CA)
  Receive Date: 20151031
  Receipt Date: 20151031
  Transmission Date: 20160304
  Serious: Yes (Other)
  Sender: FDA-Public Use
  Company Number: CA-TEVA-603986ACC

PATIENT
  Age: 65 Year
  Sex: Male
  Weight: 100 kg

DRUGS (13)
  1. HUMALOG [Concomitant]
     Active Substance: INSULIN LISPRO
  2. MULTIVITAMINE(S) [Concomitant]
  3. CEFAZOLIN FOR INJECTION USP [Suspect]
     Active Substance: CEFAZOLIN
     Indication: INFECTION
     Dosage: 6 GRAM DAILY;
     Route: 042
  4. ALLOPURINOL. [Concomitant]
     Active Substance: ALLOPURINOL
  5. ASA [Concomitant]
     Active Substance: ASPIRIN
  6. IRBESARTAN. [Concomitant]
     Active Substance: IRBESARTAN
  7. RIFAMPIN. [Concomitant]
     Active Substance: RIFAMPIN
  8. ATORVASTATIN [Concomitant]
     Active Substance: ATORVASTATIN
  9. METFORMIN [Concomitant]
     Active Substance: METFORMIN HYDROCHLORIDE
  10. SPIRONOLACTONE. [Concomitant]
     Active Substance: SPIRONOLACTONE
  11. VITAMIN D [Concomitant]
     Active Substance: CHOLECALCIFEROL
  12. AMLODIPINE [Concomitant]
     Active Substance: AMLODIPINE BESYLATE
  13. IBUPROFEN. [Concomitant]
     Active Substance: IBUPROFEN

REACTIONS (5)
  - Blood creatinine increased [Not Recovered/Not Resolved]
  - Blood potassium decreased [Not Recovered/Not Resolved]
  - Eosinophils urine present [Not Recovered/Not Resolved]
  - Nausea [Not Recovered/Not Resolved]
  - C-reactive protein abnormal [Not Recovered/Not Resolved]
